FAERS Safety Report 7683508-5 (Version None)
Quarter: 2011Q3

REPORT INFORMATION
  Report Type: 
  Country: None (occurrence: None)
  Receive Date: 20110815
  Receipt Date: 20110805
  Transmission Date: 20111222
  Serious: Yes (Other)
  Sender: FDA-Public Use
  Company Number: FR-ASTRAZENECA-2011SE36219

PATIENT
  Age: 15718 Day
  Sex: Female

DRUGS (2)
  1. SYMBICORT [Suspect]
     Dosage: 160/4.5 UG
     Route: 055
     Dates: start: 20110608, end: 20110608
  2. SYMBICORT [Suspect]
     Indication: ASTHMA
     Dosage: 160/4.5 UG, ONE INHALATION EVERY EVENING AND ONE INHALATION EVERY EVENING
     Route: 055
     Dates: start: 20110427, end: 20110512

REACTIONS (14)
  - DYSPNOEA [None]
  - FATIGUE [None]
  - PYREXIA [None]
  - DIZZINESS [None]
  - CYANOSIS [None]
  - EAR DISCOMFORT [None]
  - HEADACHE [None]
  - PAIN IN EXTREMITY [None]
  - FEELING COLD [None]
  - C-REACTIVE PROTEIN INCREASED [None]
  - TREMOR [None]
  - PERIPHERAL COLDNESS [None]
  - BACK PAIN [None]
  - OROPHARYNGEAL PAIN [None]
